FAERS Safety Report 15096279 (Version 2)
Quarter: 2018Q3

REPORT INFORMATION
  Report Type: Spontaneous
  Country: US (occurrence: US)
  Receive Date: 20180702
  Receipt Date: 20180927
  Transmission Date: 20181010
  Serious: No
  Sender: FDA-Public Use
  Company Number: US-PFIZER INC-2018262203

PATIENT
  Age: 68 Year
  Sex: Female

DRUGS (2)
  1. XELJANZ XR [Suspect]
     Active Substance: TOFACITINIB CITRATE
     Dosage: 11 MG, DAILY (XELJANZ XR TAB 11MG (X30))
     Route: 048
     Dates: start: 201805
  2. XELJANZ XR [Suspect]
     Active Substance: TOFACITINIB CITRATE
     Indication: RHEUMATOID ARTHRITIS
     Dosage: 11 MG (APPROXIMATELY TWO MONTHS LAST YEAR)
     Route: 048
     Dates: start: 2017

REACTIONS (4)
  - Night sweats [Unknown]
  - Hot flush [Unknown]
  - Nervousness [Unknown]
  - Nausea [Unknown]

NARRATIVE: CASE EVENT DATE: 20171101
